FAERS Safety Report 4721984-8 (Version None)
Quarter: 2005Q3

REPORT INFORMATION
  Report Type: 
  Country: None (occurrence: None)
  Receive Date: 20050722
  Receipt Date: 20050607
  Transmission Date: 20060218
  Serious: Yes (Hospitalization)
  Sender: FDA-Public Use
  Company Number: 2005UW08809

PATIENT
  Age: 41 Year
  Sex: Male
  Weight: 79.1 kg

DRUGS (14)
  1. CRESTOR [Suspect]
     Indication: BLOOD CHOLESTEROL INCREASED
     Route: 048
     Dates: start: 20040917, end: 20050607
  2. CRESTOR [Suspect]
     Indication: CORONARY ARTERY DISEASE
     Route: 048
     Dates: start: 20040917, end: 20050607
  3. LIPITOR [Concomitant]
  4. DILANTIN [Concomitant]
     Dosage: 100 MG IN AM AND 300 MG IN PM
  5. TOPROL-XL [Concomitant]
     Route: 048
  6. LASIX [Concomitant]
  7. PHENOBARBITAL [Concomitant]
  8. CELEXA [Concomitant]
  9. NIASPAN ER [Concomitant]
  10. LISINOPRIL [Concomitant]
  11. SPIRONOLACTONE [Concomitant]
  12. ALBUTEROL [Concomitant]
  13. FORADIL [Concomitant]
  14. COMBIVENT [Concomitant]

REACTIONS (3)
  - ASCITES [None]
  - BRONCHITIS [None]
  - CARDIAC FAILURE CONGESTIVE [None]
